FAERS Safety Report 22110879 (Version 1)
Quarter: 2023Q1

REPORT INFORMATION
  Report Type: Spontaneous
  Country: ES (occurrence: ES)
  Receive Date: 20230317
  Receipt Date: 20230317
  Transmission Date: 20230418
  Serious: Yes (Death, Other)
  Sender: FDA-Public Use
  Company Number: ES-SA-SAC20230118000417

PATIENT
  Age: 65 Year
  Sex: Female

DRUGS (8)
  1. SARCLISA [Suspect]
     Active Substance: ISATUXIMAB-IRFC
     Indication: Plasma cell myeloma
     Dosage: 600 MG
     Route: 042
     Dates: start: 20220913, end: 20220914
  2. NALOXONE [Concomitant]
     Active Substance: NALOXONE
     Indication: Toxicity to various agents
     Dosage: UNK
  3. DEXAMETHASONE [Concomitant]
     Active Substance: DEXAMETHASONE
     Indication: Plasma cell myeloma
     Dosage: 40 MG
     Dates: start: 20220913, end: 20220913
  4. ACETAMINOPHEN [Concomitant]
     Active Substance: ACETAMINOPHEN
     Indication: Plasma cell myeloma
     Dosage: UNK
  5. TRAMADOL [Concomitant]
     Active Substance: TRAMADOL
     Indication: Plasma cell myeloma
     Dosage: 100 MG
  6. MORPHINE [Concomitant]
     Active Substance: MORPHINE
     Indication: Plasma cell myeloma
     Dosage: 4 MG
  7. MIDAZOLAM [Concomitant]
     Active Substance: MIDAZOLAM
     Indication: Plasma cell myeloma
     Dosage: 5 MG
  8. DEXCHLORPHENIRAMINE [Concomitant]
     Active Substance: DEXCHLORPHENIRAMINE
     Indication: Plasma cell myeloma
     Dosage: 5 MG
     Dates: start: 20220913, end: 20220913

REACTIONS (6)
  - Respiratory failure [Fatal]
  - Somnolence [Fatal]
  - Infusion related reaction [Fatal]
  - Malaise [Fatal]
  - Dyspnoea [Fatal]
  - Depressed level of consciousness [Fatal]

NARRATIVE: CASE EVENT DATE: 20220913
